FAERS Safety Report 6818508-8 (Version None)
Quarter: 2010Q3

REPORT INFORMATION
  Report Type: 
  Country: None (occurrence: None)
  Receive Date: 20100706
  Receipt Date: 20080421
  Transmission Date: 20110219
  Serious: Yes (Other)
  Sender: FDA-Public Use
  Company Number: US-PFIZER INC-2008035474

PATIENT
  Sex: Male
  Weight: 38.95 kg

DRUGS (4)
  1. ZMAX [Suspect]
     Indication: PHARYNGITIS STREPTOCOCCAL
     Route: 048
     Dates: start: 20060101, end: 20060101
  2. OMNICEF [Suspect]
     Indication: PHARYNGITIS STREPTOCOCCAL
     Route: 048
     Dates: start: 20060401, end: 20060401
  3. AMOXICILLIN AND CLAVULANATE POTASSIUM [Suspect]
     Indication: PHARYNGITIS STREPTOCOCCAL
     Route: 048
     Dates: start: 20060101, end: 20060101
  4. AMOXICILLIN [Suspect]
     Indication: PHARYNGITIS STREPTOCOCCAL
     Route: 048
     Dates: start: 20060101, end: 20060101

REACTIONS (1)
  - CLOSTRIDIAL INFECTION [None]
